FAERS Safety Report 8785158 (Version 1)
Quarter: 2012Q4

REPORT INFORMATION
  Report Type: 
  Country: US (occurrence: US)
  Receive Date: 20120914
  Receipt Date: 20120914
  Transmission Date: 20130627
  Serious: No
  Sender: FDA-Public Use
  Company Number: US-009507513-1207USA011703

PATIENT

DRUGS (3)
  1. VICTRELIS [Suspect]
     Dosage: 200 mg, UNK
     Dates: start: 201202
  2. PEGASYS [Concomitant]
     Dosage: UNK
     Dates: start: 201201
  3. RIBASPHERE [Concomitant]
     Dosage: UNK
     Dates: start: 201201

REACTIONS (4)
  - Weight decreased [Not Recovered/Not Resolved]
  - Nausea [Not Recovered/Not Resolved]
  - Fatigue [Not Recovered/Not Resolved]
  - Dry skin [Not Recovered/Not Resolved]
